FAERS Safety Report 4638081-2 (Version None)
Quarter: 2005Q2

REPORT INFORMATION
  Report Type: 
  Country: None (occurrence: None)
  Receive Date: 20050418
  Receipt Date: 20050414
  Transmission Date: 20051028
  Serious: Yes (Life-Threatening)
  Sender: FDA-Public Use
  Company Number: DE-BRISTOL-MYERS SQUIBB COMPANY-12935276

PATIENT
  Age: 44 Year
  Sex: Female
  Weight: 72 kg

DRUGS (9)
  1. COUMADIN [Suspect]
     Indication: ANTICOAGULANT THERAPY
     Dosage: DOSAGE FORM = 1-2 TABLETS DAILY
     Route: 048
     Dates: start: 20040907, end: 20040929
  2. MARCUMAR [Suspect]
     Indication: ANTICOAGULANT THERAPY
     Dosage: DOSAGE FORM = 1-2 TABLETS DAILY
     Route: 048
     Dates: start: 20040930, end: 20041006
  3. HEPARIN [Concomitant]
     Indication: THROMBOSIS
  4. PREVISCAN [Concomitant]
     Indication: ANTICOAGULANT THERAPY
  5. FRAXIPARINE [Concomitant]
     Dosage: DOSAGE FORM = 0.6(0-0-1)
     Dates: start: 20041007
  6. HORMONE THERAPY [Concomitant]
  7. VITAMIN B COMPLEX CAP [Concomitant]
     Indication: MENORRHAGIA
  8. IRON [Concomitant]
     Indication: MENORRHAGIA
  9. MULIMEN [Concomitant]

REACTIONS (2)
  - BLOOD PRESSURE INCREASED [None]
  - INTERNATIONAL NORMALISED RATIO DECREASED [None]
